FAERS Safety Report 4448052-7 (Version None)
Quarter: 2004Q3

REPORT INFORMATION
  Report Type: 
  Country: None (occurrence: None)
  Receive Date: 20040812
  Receipt Date: 20040615
  Transmission Date: 20050211
  Serious: No
  Sender: FDA-Public Use
  Company Number: USA040669757

PATIENT
  Age: 60 Year
  Sex: Male

DRUGS (4)
  1. CIALIS [Suspect]
     Dosage: 20 MG AS NEEDED
     Dates: start: 20040501
  2. ATORVASTATIN CALCIUM [Concomitant]
  3. LISINOPRIL [Concomitant]
  4. TESTISTERONE [Concomitant]

REACTIONS (1)
  - CHEST PAIN [None]
